FAERS Safety Report 8960227 (Version 2)
Quarter: 2013Q1

REPORT INFORMATION
  Report Type: Spontaneous
  Country: US (occurrence: US)
  Receive Date: 20121212
  Receipt Date: 20130122
  Transmission Date: 20140127
  Serious: Yes (Death, Other)
  Sender: FDA-Public Use
  Company Number: US-PFIZER INC-2012308227

PATIENT
  Age: 37 Year
  Sex: Male

DRUGS (1)
  1. VFEND [Suspect]
     Indication: ACUTE MYELOID LEUKAEMIA
     Dosage: 200 MG, 2X/DAY
     Dates: start: 20120727

REACTIONS (1)
  - Death [Fatal]
